FAERS Safety Report 9250420 (Version 1)
Quarter: 2013Q1

REPORT INFORMATION
  Report Type: Spontaneous
  Country: US (occurrence: None)
  Receive Date: 20121114
  Receipt Date: 20121114
  Transmission Date: 20140127
  Serious: Yes (Hospitalization)
  Sender: FDA-Public Use
  Company Number: A-NJ2011-58217

PATIENT
  Age: 35 Year
  Sex: Female

DRUGS (3)
  1. VENTAVIS [Suspect]
     Indication: PULMONARY ARTERIAL HYPERTENSION
     Route: 055
     Dates: start: 20050920
  2. REVATIO (SILDENAFIL CITRATE) (UNKNOWN) (SILDENAFIL) [Concomitant]
  3. COUMADIN (WARFARIN SODIUM) [Concomitant]

REACTIONS (1)
  - Chest pain [None]
